FAERS Safety Report 8533022-X (Version None)
Quarter: 2012Q3

REPORT INFORMATION
  Report Type: 
  Country: None (occurrence: None)
  Receive Date: 20120711
  Receipt Date: 20120627
  Transmission Date: 20120928
  Serious: Yes (Hospitalization, Other)
  Sender: FDA-Public Use
  Company Number: 2012AP002008

PATIENT
  Age: 26 Year
  Sex: Female

DRUGS (6)
  1. OLANZAPINE [Suspect]
     Indication: PSYCHOMOTOR HYPERACTIVITY
     Dosage: 200 MG; QD
  2. ZUCLOPENTHIXOL (ZUCLOPENTHIXOL) [Suspect]
     Indication: AGGRESSION
  3. RISPERIDONE [Suspect]
     Indication: PSYCHOTIC DISORDER
     Dosage: 2 MG;
  4. CLOZAPINE [Suspect]
     Indication: DYSTONIA
     Dosage: 100 MG;UNK;QD
  5. CLOZAPINE [Suspect]
     Indication: CATATONIA
     Dosage: 100 MG;UNK;QD
  6. LORAZEPAM [Concomitant]

REACTIONS (7)
  - NEUTROPENIA [None]
  - CEREBRAL ATROPHY [None]
  - DISEASE RECURRENCE [None]
  - AGGRESSION [None]
  - NO THERAPEUTIC RESPONSE [None]
  - CONDITION AGGRAVATED [None]
  - CATATONIA [None]
